FAERS Safety Report 20917683 (Version 2)
Quarter: 2022Q2

REPORT INFORMATION
  Report Type: Spontaneous
  Country: JP (occurrence: JP)
  Receive Date: 20220606
  Receipt Date: 20220620
  Transmission Date: 20220721
  Serious: No
  Sender: FDA-Public Use
  Company Number: JP-NOVOPROD-923474

PATIENT
  Sex: Female

DRUGS (1)
  1. RYBELSUS [Suspect]
     Active Substance: SEMAGLUTIDE
     Indication: Weight control
     Dosage: UNK
     Route: 048

REACTIONS (4)
  - Internal haemorrhage [Unknown]
  - Vasodilatation [Unknown]
  - Rheumatic disorder [Unknown]
  - Off label use [Unknown]
